FAERS Safety Report 4974213-4 (Version None)
Quarter: 2006Q2

REPORT INFORMATION
  Report Type: 
  Country: None (occurrence: None)
  Receive Date: 20060417
  Receipt Date: 20051004
  Transmission Date: 20061013
  Serious: Yes (Hospitalization, Disabling)
  Sender: FDA-Public Use
  Company Number: US-MERCK-0510USA03486

PATIENT
  Age: 50 Year
  Sex: Male
  Weight: 68 kg

DRUGS (2)
  1. VIOXX [Suspect]
     Indication: ARTHRITIS
     Route: 048
     Dates: start: 20030101, end: 20040101
  2. TYLENOL (CAPLET) [Concomitant]
     Route: 065

REACTIONS (13)
  - CARDIOVASCULAR DISORDER [None]
  - CEREBRAL THROMBOSIS [None]
  - CEREBROVASCULAR DISORDER [None]
  - CHEST PAIN [None]
  - DEAFNESS UNILATERAL [None]
  - HEADACHE [None]
  - HYPERTENSION [None]
  - LACUNAR INFARCTION [None]
  - LOWER LIMB FRACTURE [None]
  - OESOPHAGEAL STENOSIS [None]
  - THROMBOSIS [None]
  - TINNITUS [None]
  - VERTIGO [None]
